FAERS Safety Report 7817778-7 (Version None)
Quarter: 2011Q4

REPORT INFORMATION
  Report Type: 
  Country: None (occurrence: None)
  Receive Date: 20111017
  Receipt Date: 20111005
  Transmission Date: 20120403
  Serious: Yes (Hospitalization, Other)
  Sender: FDA-Public Use
  Company Number: DE-PFIZER INC-DE-WYE-H18213910

PATIENT
  Age: 58 Year
  Sex: Male
  Weight: 76.8 kg

DRUGS (3)
  1. ASPIRIN [Concomitant]
     Indication: ARRHYTHMIA PROPHYLAXIS
     Dosage: 100 MG, 1X/DAY
     Route: 048
     Dates: start: 20100705
  2. TEMSIROLIMUS [Suspect]
     Indication: GLIOBLASTOMA
     Dosage: 25 MG, 1X/WEEK
     Route: 042
     Dates: start: 20100714, end: 20101007
  3. KEPPRA [Concomitant]
     Indication: CONVULSION
     Dosage: 750 MG, 1X/DAY
     Route: 048
     Dates: start: 20100620

REACTIONS (1)
  - PNEUMONIA PRIMARY ATYPICAL [None]
